FAERS Safety Report 17433018 (Version 1)
Quarter: 2020Q1

REPORT INFORMATION
  Report Type: Spontaneous
  Country: US (occurrence: US)
  Receive Date: 20200219
  Receipt Date: 20200219
  Transmission Date: 20200409
  Serious: No
  Sender: FDA-Public Use
  Company Number: US-BAUSCH-BL-2020-004726

PATIENT
  Age: 56 Year
  Sex: Female
  Weight: 67.19 kg

DRUGS (2)
  1. XIFAXAN [Suspect]
     Active Substance: RIFAXIMIN
     Indication: PRODUCT USE ISSUE
     Route: 065
     Dates: start: 2020
  2. XIFAXAN [Suspect]
     Active Substance: RIFAXIMIN
     Indication: IRRITABLE BOWEL SYNDROME
     Dosage: STOP DATE UNKNOWN
     Route: 065
     Dates: start: 201912

REACTIONS (5)
  - Therapy cessation [Unknown]
  - Product use in unapproved indication [Unknown]
  - Irritable bowel syndrome [Unknown]
  - Drug effective for unapproved indication [Unknown]
  - Disease recurrence [Unknown]

NARRATIVE: CASE EVENT DATE: 201912
